FAERS Safety Report 9807579 (Version 1)
Quarter: 2014Q1

REPORT INFORMATION
  Report Type: Spontaneous
  Country: US (occurrence: US)
  Receive Date: 20140110
  Receipt Date: 20140110
  Transmission Date: 20141002
  Serious: No
  Sender: FDA-Public Use
  Company Number: US-SANOFI-AVENTIS-2013SA041626

PATIENT
  Age: 68 Year
  Sex: Male
  Weight: 62 kg

DRUGS (7)
  1. PLAVIX [Suspect]
     Indication: VENOUS THROMBOSIS
     Route: 065
     Dates: start: 20120103
  2. BENEFIBER [Concomitant]
  3. BISACODYL [Concomitant]
  4. DILANTIN [Concomitant]
  5. SODIUM CHLORIDE [Concomitant]
  6. TEGRETOL [Concomitant]
  7. ZETIA [Concomitant]

REACTIONS (1)
  - Vein disorder [Not Recovered/Not Resolved]
